FAERS Safety Report 4358335-7 (Version None)
Quarter: 2004Q2

REPORT INFORMATION
  Report Type: 
  Country: None (occurrence: None)
  Receive Date: 20040511
  Receipt Date: 20040425
  Transmission Date: 20050107
  Serious: Yes (Other)
  Sender: FDA-Public Use
  Company Number: 2003121603

PATIENT
  Sex: Male

DRUGS (8)
  1. DILANTIN [Suspect]
     Indication: GRAND MAL CONVULSION
     Dosage: 1600 MG (QID), ORAL
     Route: 048
     Dates: start: 19810101
  2. DILANTIN [Suspect]
     Indication: PETIT MAL EPILEPSY
     Dosage: 1600 MG (QID), ORAL
     Route: 048
     Dates: start: 19810101
  3. NEURONTIN [Suspect]
     Indication: GRAND MAL CONVULSION
     Dosage: 1200 MG (QID), ORAL
     Route: 048
     Dates: end: 20030101
  4. NEURONTIN [Suspect]
     Indication: PETIT MAL EPILEPSY
     Dosage: 1200 MG (QID), ORAL
     Route: 048
     Dates: end: 20030101
  5. ANTIEPILEPTICS (ANTIEPILEPTICS) [Suspect]
     Indication: GRAND MAL CONVULSION
  6. ANTIEPILEPTICS (ANTIEPILEPTICS) [Suspect]
     Indication: PETIT MAL EPILEPSY
  7. ESCITALOPRAM (ESCITALOPRAM) [Concomitant]
  8. CANNABIS (CANNABIS) [Concomitant]

REACTIONS (23)
  - ABASIA [None]
  - APHASIA [None]
  - ARTHRALGIA [None]
  - BONE PAIN [None]
  - CONFUSIONAL STATE [None]
  - CONVULSION [None]
  - DECREASED ACTIVITY [None]
  - DEPRESSION [None]
  - DIARRHOEA [None]
  - DRUG INEFFECTIVE [None]
  - DRUG TOXICITY [None]
  - DYSPHEMIA [None]
  - EPILEPSY [None]
  - GRAND MAL CONVULSION [None]
  - HUMERUS FRACTURE [None]
  - LOSS OF EMPLOYMENT [None]
  - MEMORY IMPAIRMENT [None]
  - MYALGIA [None]
  - PERSONALITY DISORDER [None]
  - PETIT MAL EPILEPSY [None]
  - ROTATOR CUFF SYNDROME [None]
  - TREMOR [None]
  - WEIGHT INCREASED [None]
